FAERS Safety Report 7022431-6 (Version None)
Quarter: 2010Q3

REPORT INFORMATION
  Report Type: 
  Country: None (occurrence: None)
  Receive Date: 20100930
  Receipt Date: 20100920
  Transmission Date: 20110219
  Serious: Yes (Other)
  Sender: FDA-Public Use
  Company Number: US-ROCHE-728494

PATIENT
  Age: 88 Year
  Sex: Female

DRUGS (3)
  1. BEVACIZUMAB [Suspect]
     Dosage: DOSE:1.25 MG/0.05 ML.
     Route: 031
     Dates: start: 20060510
  2. GENTAMICIN [Concomitant]
     Route: 065
  3. GENTAMICIN [Concomitant]
     Dosage: ROUTE: TOPICAL.
     Route: 065

REACTIONS (2)
  - CATARACT [None]
  - EYE INFECTION STAPHYLOCOCCAL [None]
